FAERS Safety Report 6877116-3 (Version None)
Quarter: 2010Q3

REPORT INFORMATION
  Report Type: 
  Country: None (occurrence: None)
  Receive Date: 20100727
  Receipt Date: 20100727
  Transmission Date: 20110219
  Serious: Yes (Hospitalization, Disabling)
  Sender: FDA-Public Use
  Company Number: None

PATIENT
  Sex: Male
  Weight: 84.8 kg

DRUGS (2)
  1. VANCOMYCIN [Suspect]
     Indication: CELLULITIS
     Dosage: 1250MG EVERY 8 HOURS IV
     Route: 042
     Dates: start: 20100718, end: 20100719
  2. ZOSYN [Suspect]
     Indication: BURSITIS INFECTIVE
     Dosage: 4.5GRAMS EVERY 6 HOURS IV
     Route: 042
     Dates: start: 20100718, end: 20100720

REACTIONS (2)
  - ANTIBIOTIC RESISTANT STAPHYLOCOCCUS TEST POSITIVE [None]
  - RENAL FAILURE ACUTE [None]
